FAERS Safety Report 6772851-X (Version None)
Quarter: 2010Q2

REPORT INFORMATION
  Report Type: 
  Country: None (occurrence: None)
  Receive Date: 20100616
  Receipt Date: 20100517
  Transmission Date: 20101027
  Serious: Yes (Disabling, Other)
  Sender: FDA-Public Use
  Company Number: AU-SANOFI-AVENTIS-2010SA027922

PATIENT
  Age: 80 Year
  Sex: Male

DRUGS (6)
  1. PLAVIX [Suspect]
     Route: 048
  2. QUININE [Concomitant]
  3. SINEMET [Concomitant]
  4. VASOCARDOL [Concomitant]
  5. LIPITOR [Concomitant]
     Indication: BLOOD CHOLESTEROL INCREASED
  6. SOMAC [Concomitant]

REACTIONS (5)
  - HAEMORRHAGE [None]
  - JOINT STIFFNESS [None]
  - MUSCLE RIGIDITY [None]
  - MUSCLE SPASMS [None]
  - WALKING DISABILITY [None]
